FAERS Safety Report 9586425 (Version 2)
Quarter: 2014Q1

REPORT INFORMATION
  Report Type: Spontaneous
  Country: US (occurrence: US)
  Receive Date: 20131003
  Receipt Date: 20140312
  Transmission Date: 20141002
  Serious: Yes (Hospitalization, Other)
  Sender: FDA-Public Use
  Company Number: US-BAYER-2013-119225

PATIENT
  Age: 18 Year
  Sex: Female
  Weight: 81.63 kg

DRUGS (2)
  1. MIRENA [Suspect]
     Indication: CONTRACEPTION
     Dosage: 20 MCG/24HR, CONT
     Route: 015
     Dates: start: 20090126, end: 20110406
  2. TRILEPTAL [Concomitant]
     Indication: BIPOLAR DISORDER

REACTIONS (9)
  - Uterine perforation [None]
  - Vaginal haemorrhage [None]
  - Device dislocation [None]
  - Abdominal pain lower [None]
  - Medical device pain [None]
  - Injury [None]
  - Emotional distress [None]
  - Anxiety [None]
  - Device issue [None]
